FAERS Safety Report 20924787 (Version 1)
Quarter: 2022Q2

REPORT INFORMATION
  Report Type: Spontaneous
  Country: JP (occurrence: JP)
  Receive Date: 20220607
  Receipt Date: 20220607
  Transmission Date: 20220720
  Serious: Yes (Death, Other)
  Sender: FDA-Public Use
  Company Number: JP-TEVA-2022-JP-2043485

PATIENT
  Age: 10 Year
  Sex: Male

DRUGS (29)
  1. IMATINIB [Suspect]
     Active Substance: IMATINIB
     Indication: Philadelphia chromosome positive
     Route: 065
  2. IMATINIB [Suspect]
     Active Substance: IMATINIB
     Indication: Precursor B-lymphoblastic lymphoma stage IV
  3. PONATINIB [Suspect]
     Active Substance: PONATINIB
     Indication: Philadelphia chromosome positive
     Dosage: 14 MG/M2 DAILY; THREE COURSES
     Route: 065
  4. PONATINIB [Suspect]
     Active Substance: PONATINIB
     Indication: Precursor B-lymphoblastic lymphoma stage IV
     Dosage: 7 MG/M2 DAILY;
     Route: 048
  5. BLINATUMOMAB [Suspect]
     Active Substance: BLINATUMOMAB
     Indication: Philadelphia chromosome positive
     Route: 065
  6. BLINATUMOMAB [Suspect]
     Active Substance: BLINATUMOMAB
     Indication: Precursor B-lymphoblastic lymphoma stage IV
  7. INOTUZUMAB OZOGAMICIN [Suspect]
     Active Substance: INOTUZUMAB OZOGAMICIN
     Indication: Philadelphia chromosome positive
     Route: 065
  8. INOTUZUMAB OZOGAMICIN [Suspect]
     Active Substance: INOTUZUMAB OZOGAMICIN
     Indication: Precursor B-lymphoblastic lymphoma stage IV
  9. ETOPOSIDE [Concomitant]
     Active Substance: ETOPOSIDE
     Indication: Philadelphia chromosome positive
     Route: 065
  10. ETOPOSIDE [Concomitant]
     Active Substance: ETOPOSIDE
     Indication: Precursor B-lymphoblastic lymphoma stage IV
  11. CYTARABINE [Concomitant]
     Active Substance: CYTARABINE
     Indication: Philadelphia chromosome positive
     Route: 065
  12. CYTARABINE [Concomitant]
     Active Substance: CYTARABINE
     Indication: Precursor B-lymphoblastic lymphoma stage IV
  13. VINCRISTINE [Concomitant]
     Active Substance: VINCRISTINE
     Indication: Philadelphia chromosome positive
     Route: 065
  14. VINCRISTINE [Concomitant]
     Active Substance: VINCRISTINE
     Indication: Precursor B-lymphoblastic lymphoma stage IV
  15. DEXAMETHASONE [Concomitant]
     Active Substance: DEXAMETHASONE
     Indication: Philadelphia chromosome positive
     Route: 065
  16. DEXAMETHASONE [Concomitant]
     Active Substance: DEXAMETHASONE
     Indication: Precursor B-lymphoblastic lymphoma stage IV
  17. DAUNORUBICIN [Concomitant]
     Active Substance: DAUNORUBICIN
     Indication: Philadelphia chromosome positive
     Route: 065
  18. DAUNORUBICIN [Concomitant]
     Active Substance: DAUNORUBICIN
     Indication: Precursor B-lymphoblastic lymphoma stage IV
  19. IFOSFAMIDE [Concomitant]
     Active Substance: IFOSFAMIDE
     Indication: Philadelphia chromosome positive
     Route: 065
  20. IFOSFAMIDE [Concomitant]
     Active Substance: IFOSFAMIDE
     Indication: Precursor B-lymphoblastic lymphoma stage IV
  21. VINORELBINE [Concomitant]
     Active Substance: VINORELBINE TARTRATE
     Indication: Philadelphia chromosome positive
     Route: 065
  22. VINORELBINE [Concomitant]
     Active Substance: VINORELBINE TARTRATE
     Indication: Precursor B-lymphoblastic lymphoma stage IV
  23. METHOTREXATE [Concomitant]
     Active Substance: METHOTREXATE
     Indication: Philadelphia chromosome positive
     Route: 065
  24. METHOTREXATE [Concomitant]
     Active Substance: METHOTREXATE
     Indication: Precursor B-lymphoblastic lymphoma stage IV
  25. PREDNISONE [Concomitant]
     Active Substance: PREDNISONE
     Indication: Philadelphia chromosome positive
     Route: 065
  26. PREDNISONE [Concomitant]
     Active Substance: PREDNISONE
     Indication: Precursor B-lymphoblastic lymphoma stage IV
  27. MITOXANTRONE [Concomitant]
     Active Substance: MITOXANTRONE HYDROCHLORIDE
     Indication: Philadelphia chromosome positive
     Route: 065
  28. MITOXANTRONE [Concomitant]
     Active Substance: MITOXANTRONE HYDROCHLORIDE
     Indication: Precursor B-lymphoblastic lymphoma stage IV
  29. MELPHALAN [Concomitant]
     Active Substance: MELPHALAN
     Indication: Bone marrow conditioning regimen
     Route: 065

REACTIONS (3)
  - Drug ineffective [Fatal]
  - Nausea [Unknown]
  - Vomiting [Unknown]
